FAERS Safety Report 8837258 (Version 1)
Quarter: 2012Q4

REPORT INFORMATION
  Report Type: 
  Country: JP (occurrence: JP)
  Receive Date: 20121011
  Receipt Date: 20121011
  Transmission Date: 20130627
  Serious: Yes (Hospitalization)
  Sender: FDA-Public Use
  Company Number: JP-009507513-1210JPN003400

PATIENT
  Age: 50 Year
  Sex: Male
  Weight: 52 kg

DRUGS (5)
  1. GASTER [Suspect]
     Indication: HAEMORRHAGE PROPHYLAXIS
     Dosage: 20 mg, tiw
     Route: 048
  2. WARFARIN [Suspect]
     Dosage: 3.5 mg, qd
     Route: 048
  3. CALTAN [Concomitant]
  4. MAXACALCITOL [Concomitant]
  5. PROSTANDIN [Concomitant]
     Dosage: UNK
     Dates: start: 200008, end: 200211

REACTIONS (2)
  - Gastrointestinal haemorrhage [Unknown]
  - Drug ineffective for unapproved indication [Unknown]
